FAERS Safety Report 9904829 (Version 1)
Quarter: 2014Q1

REPORT INFORMATION
  Report Type: Spontaneous
  Country: DE (occurrence: DE)
  Receive Date: 20140218
  Receipt Date: 20140218
  Transmission Date: 20141002
  Serious: Yes (Other)
  Sender: FDA-Public Use
  Company Number: DE-TEVA-461989GER

PATIENT
  Age: 53 Year
  Sex: Female
  Weight: 89 kg

DRUGS (2)
  1. METHOTREXAT [Suspect]
     Indication: RHEUMATOID ARTHRITIS
     Route: 058
  2. METHOTREXAT [Suspect]
     Route: 048
     Dates: start: 201201

REACTIONS (2)
  - Alveolitis [Not Recovered/Not Resolved]
  - Sarcoidosis [Not Recovered/Not Resolved]
